FAERS Safety Report 9415518 (Version 1)
Quarter: 2013Q3

REPORT INFORMATION
  Report Type: Spontaneous
  Country: GR (occurrence: GR)
  Receive Date: 20130723
  Receipt Date: 20130723
  Transmission Date: 20140515
  Serious: Yes (Hospitalization, Other)
  Sender: FDA-Public Use
  Company Number: GR-SHIRE-ALL1-2013-04805

PATIENT
  Age: 44 Year
  Sex: Female

DRUGS (1)
  1. MEZAVANT [Suspect]
     Indication: CROHN^S DISEASE
     Dosage: 2.4 G, 1X/DAY:QD

REACTIONS (6)
  - Septic shock [Recovering/Resolving]
  - Ileus [Unknown]
  - Peritonitis [Unknown]
  - Vitiligo [Not Recovered/Not Resolved]
  - Malnutrition [Not Recovered/Not Resolved]
  - Off label use [Unknown]
